FAERS Safety Report 4443701-1 (Version None)
Quarter: 2004Q3

REPORT INFORMATION
  Report Type: 
  Country: None (occurrence: None)
  Receive Date: 20040908
  Receipt Date: 20040901
  Transmission Date: 20050211
  Serious: Yes (Other)
  Sender: FDA-Public Use
  Company Number: US-ROCHE-379577

PATIENT
  Age: 47 Year
  Sex: Male

DRUGS (2)
  1. CELLCEPT [Suspect]
     Route: 048
     Dates: start: 20040715
  2. PROGRAF [Concomitant]
     Route: 048
     Dates: start: 20040715

REACTIONS (2)
  - DELIRIUM [None]
  - MYOCLONUS [None]
